FAERS Safety Report 4620555-1 (Version None)
Quarter: 2005Q1

REPORT INFORMATION
  Report Type: 
  Country: None (occurrence: None)
  Receive Date: 20050324
  Receipt Date: 20050316
  Transmission Date: 20050727
  Serious: Yes (Hospitalization)
  Sender: FDA-Public Use
  Company Number: US014892

PATIENT
  Age: 27 Year
  Sex: Female

DRUGS (5)
  1. PROVIGIL [Suspect]
     Indication: HYPERSOMNIA
     Dosage: 600  MG QD ORAL
     Route: 048
     Dates: end: 20050314
  2. VASOPRESSIN [Concomitant]
  3. GROWTH HORMONE [Concomitant]
  4. RITALIN [Concomitant]
  5. THYROID TAB [Concomitant]

REACTIONS (4)
  - COMA [None]
  - CONFUSIONAL STATE [None]
  - PANCYTOPENIA [None]
  - RASH [None]
